FAERS Safety Report 8603926-8 (Version None)
Quarter: 2012Q3

REPORT INFORMATION
  Report Type: 
  Country: None (occurrence: None)
  Receive Date: 20120820
  Receipt Date: 20101222
  Transmission Date: 20120928
  Serious: Yes (Death, Life-Threatening)
  Sender: FDA-Public Use
  Company Number: DE-MERCK-2010SP027916

PATIENT

DRUGS (2)
  1. PLACEBO [Suspect]
     Indication: PROPHYLAXIS
     Route: 042
     Dates: start: 20100504, end: 20100504
  2. POSACONAZOLE [Suspect]
     Indication: PROPHYLAXIS
     Dosage: 400 MG, BID
     Route: 048
     Dates: start: 20100504, end: 20100510

REACTIONS (2)
  - SEPTIC SHOCK [None]
  - HYPERBILIRUBINAEMIA [None]
